FAERS Safety Report 20993241 (Version 1)
Quarter: 2022Q2

REPORT INFORMATION
  Report Type: Spontaneous
  Country: US (occurrence: US)
  Receive Date: 20220622
  Receipt Date: 20220622
  Transmission Date: 20220720
  Serious: No
  Sender: FDA-Public Use
  Company Number: US-BRISTOL-MYERS SQUIBB COMPANY-2022-049699

PATIENT
  Age: 72 Year
  Sex: Female
  Weight: 66.68 kg

DRUGS (1)
  1. ELIQUIS [Suspect]
     Active Substance: APIXABAN
     Indication: Embolism venous
     Dosage: STARTED UNDER WEEK 2 INSTEAD OF WEEK 1.  THEREFORE, SHE HAS NOW TAKEN ONLY 2 TABLETS PER DAY FOR 4 D
     Route: 048

REACTIONS (2)
  - Inappropriate schedule of product administration [Unknown]
  - Incorrect dose administered [Unknown]
